FAERS Safety Report 7014135-0 (Version None)
Quarter: 2010Q3

REPORT INFORMATION
  Report Type: 
  Country: None (occurrence: None)
  Receive Date: 20100927
  Receipt Date: 20100917
  Transmission Date: 20110219
  Serious: Yes (Other)
  Sender: FDA-Public Use
  Company Number: PHHY2010BE46544

PATIENT
  Sex: Male

DRUGS (4)
  1. DIOVAN [Suspect]
     Indication: HYPERTENSION
     Dosage: 160 MG
     Dates: start: 20091103, end: 20100605
  2. BISOPROLOL FUMARATE [Concomitant]
     Dosage: 5 MG
  3. SIMVASTATIN [Concomitant]
  4. AMLODIPINE [Concomitant]
     Dosage: UNK

REACTIONS (3)
  - DILATATION VENTRICULAR [None]
  - SUICIDAL IDEATION [None]
  - VENTRICULAR HYPOKINESIA [None]
